FAERS Safety Report 12651054 (Version 1)
Quarter: 2016Q3

REPORT INFORMATION
  Report Type: Spontaneous
  Country: US (occurrence: US)
  Receive Date: 20160815
  Receipt Date: 20160815
  Transmission Date: 20161109
  Serious: No
  Sender: FDA-Public Use
  Company Number: US-JAZZ-2016-US-005445

PATIENT
  Sex: Male
  Weight: 81.63 kg

DRUGS (11)
  1. XYREM [Suspect]
     Active Substance: SODIUM OXYBATE
     Indication: NARCOLEPSY
     Dosage: 2.25 G, BID
     Route: 048
     Dates: start: 200304, end: 2003
  2. GINSENG [Concomitant]
     Active Substance: ASIAN GINSENG
  3. OMEGA 3 FISH OIL [Concomitant]
     Active Substance: FISH OIL\OMEGA-3 FATTY ACIDS
  4. CYMBALTA [Concomitant]
     Active Substance: DULOXETINE HYDROCHLORIDE
  5. MULTIVITAMINS [Concomitant]
     Active Substance: VITAMINS
  6. LUNESTA [Concomitant]
     Active Substance: ESZOPICLONE
  7. VITAMIN D [Concomitant]
     Active Substance: CHOLECALCIFEROL
  8. XYREM [Suspect]
     Active Substance: SODIUM OXYBATE
     Dosage: 2.5 G, BID
     Route: 048
     Dates: start: 201510
  9. FOLIC ACID. [Concomitant]
     Active Substance: FOLIC ACID
  10. XYREM [Suspect]
     Active Substance: SODIUM OXYBATE
     Indication: SOMNOLENCE
     Dosage: 2.25 G, BID
     Route: 048
     Dates: start: 201506, end: 201509
  11. MELATONIN [Concomitant]
     Active Substance: MELATONIN

REACTIONS (7)
  - Hyperphagia [Unknown]
  - Blood aldosterone abnormal [Unknown]
  - Anxiety [Unknown]
  - Salt craving [Unknown]
  - Hypophagia [Unknown]
  - Constipation [Unknown]
  - Overweight [Unknown]
